FAERS Safety Report 4906052-4 (Version None)
Quarter: 2006Q1

REPORT INFORMATION
  Report Type: 
  Country: None (occurrence: None)
  Receive Date: 20060207
  Receipt Date: 20060125
  Transmission Date: 20060701
  Serious: Yes (Hospitalization)
  Sender: FDA-Public Use
  Company Number: GXKR2006DE00630

PATIENT
  Age: 40 Year
  Sex: Female

DRUGS (2)
  1. CLARITHROMYCIN [Suspect]
     Indication: PNEUMONIA
     Dosage: 250 MG, BID, ORAL
     Route: 048
     Dates: start: 20051212, end: 20051216
  2. CEFTRIAXONA (NGX) (CEFTRIAXONE) POWDER FOR SOL FOR INJ, 2G [Suspect]
     Indication: PNEUMONIA
     Dosage: 2 G, QD, INTRAVENOUS
     Route: 042
     Dates: start: 20051214, end: 20051217

REACTIONS (1)
  - ACUTE PSYCHOSIS [None]
